FAERS Safety Report 9031110 (Version 1)
Quarter: 2013Q1

REPORT INFORMATION
  Report Type: Spontaneous
  Country: US (occurrence: US)
  Receive Date: 20130123
  Receipt Date: 20130123
  Transmission Date: 20140127
  Serious: No
  Sender: FDA-Public Use
  Company Number: US-BAYER-2013-004302

PATIENT
  Age: 37 Year
  Sex: Female

DRUGS (3)
  1. BETASERON [Suspect]
     Dosage: UNK
  2. BETASERON [Suspect]
     Dosage: 1 ML, QOD
     Route: 058
  3. MOTRIN [Concomitant]
     Dosage: 200 MG, UNK

REACTIONS (1)
  - Fatigue [Unknown]
